FAERS Safety Report 6611793-7 (Version None)
Quarter: 2010Q1

REPORT INFORMATION
  Report Type: 
  Country: None (occurrence: None)
  Receive Date: 20100303
  Receipt Date: 20100219
  Transmission Date: 20100710
  Serious: Yes (Other)
  Sender: FDA-Public Use
  Company Number: JP-ROCHE-681934

PATIENT
  Sex: Male
  Weight: 13 kg

DRUGS (8)
  1. TAMIFLU [Suspect]
     Indication: INFLUENZA
     Dosage: TAMIFLU DRY SYRUP 3%
     Route: 048
     Dates: start: 20100120, end: 20100121
  2. CARBAPENEM ANTIBIOTICS [Concomitant]
     Dosage: ORAPENEM(TEBIPENEM PIVOXIL), FORM: MINUTE GRAIN
     Route: 048
     Dates: start: 20100120
  3. BIOFERMIN [Concomitant]
     Dosage: DOSE FORM: POWDERED MEDICINE.
     Route: 048
     Dates: start: 20100120
  4. TELGIN G [Concomitant]
     Route: 048
     Dates: start: 20100120
  5. MUCODYNE [Concomitant]
     Route: 048
     Dates: start: 20100120
  6. ASVERIN [Concomitant]
     Dosage: DOSE FORM: POWDERED MEDICINE
     Route: 048
     Dates: start: 20100120
  7. BROCIN [Concomitant]
     Dosage: DOSE FORM: PERORAL LIQUID PREPARATION
     Route: 048
     Dates: start: 20100120
  8. HOKUNALIN [Concomitant]
     Dosage: DOSE FORM: TAPE
     Route: 062
     Dates: start: 20100120

REACTIONS (1)
  - ABNORMAL BEHAVIOUR [None]
